FAERS Safety Report 23178730 (Version 1)
Quarter: 2023Q4

REPORT INFORMATION
  Report Type: Spontaneous
  Country: CN (occurrence: CN)
  Receive Date: 20231113
  Receipt Date: 20231113
  Transmission Date: 20240109
  Serious: Yes (Hospitalization)
  Sender: FDA-Public Use
  Company Number: CN-BAYER-2023A159526

PATIENT
  Age: 49 Year
  Sex: Male
  Weight: 50 kg

DRUGS (2)
  1. NEXAVAR [Suspect]
     Active Substance: SORAFENIB
     Indication: Renal cancer stage IV
     Dosage: 2 DF, BID
     Route: 048
     Dates: start: 20231001, end: 20231010
  2. MORPHINE [Concomitant]
     Active Substance: MORPHINE
     Indication: Renal cancer stage IV
     Dosage: 60 MG, BID
     Route: 048

REACTIONS (6)
  - Gait disturbance [None]
  - Palmar-plantar erythrodysaesthesia syndrome [Recovering/Resolving]
  - Dermatitis allergic [Recovering/Resolving]
  - Pain of skin [None]
  - Skin mass [None]
  - Hyperkeratosis [None]

NARRATIVE: CASE EVENT DATE: 20231010
